FAERS Safety Report 18777828 (Version 1)
Quarter: 2021Q1

REPORT INFORMATION
  Report Type: Spontaneous
  Country: US (occurrence: US)
  Receive Date: 20210122
  Receipt Date: 20210122
  Transmission Date: 20210419
  Serious: No
  Sender: FDA-Public Use
  Company Number: 2020SGN04034

PATIENT
  Sex: Female

DRUGS (3)
  1. XELODA [Suspect]
     Active Substance: CAPECITABINE
     Dosage: 3 TABS IN THE MORNING AND 3 IN THE AFTERNOON FOR 7 DAYS ON, 7 DAYS OFF
  2. TUKYSA [Suspect]
     Active Substance: TUCATINIB
     Indication: BREAST CANCER FEMALE
     Dosage: UNK
  3. XELODA [Suspect]
     Active Substance: CAPECITABINE
     Indication: BREAST CANCER FEMALE
     Dosage: 4 TABLETS TWICE DAILY FOR 14 DAYS ON, 7 DAYS OFF
     Route: 048

REACTIONS (3)
  - Neuropathy peripheral [Unknown]
  - Nail discomfort [Unknown]
  - Diarrhoea [Unknown]
